FAERS Safety Report 16031627 (Version 1)
Quarter: 2019Q1

REPORT INFORMATION
  Report Type: Spontaneous
  Country: US (occurrence: US)
  Receive Date: 20190304
  Receipt Date: 20190304
  Transmission Date: 20190418
  Serious: No
  Sender: FDA-Public Use
  Company Number: US-IMPAX LABORATORIES, LLC-2018-IPXL-01861

PATIENT
  Age: 67 Year
  Sex: Male
  Weight: 56 kg

DRUGS (5)
  1. RYTARY [Suspect]
     Active Substance: CARBIDOPA\LEVODOPA
     Indication: PARKINSON^S DISEASE
     Dosage: 61.25/245 MG, ONE CAPSULE, ONCE DAILY
     Route: 048
     Dates: start: 201805, end: 201805
  2. SINEMET [Concomitant]
     Active Substance: CARBIDOPA\LEVODOPA
     Indication: PARKINSON^S DISEASE
     Dosage: 25/100 MG, 6-8 TABLETS, A DAY
     Route: 048
  3. LISINOPRIL. [Concomitant]
     Active Substance: LISINOPRIL
     Indication: HYPERTENSION
     Dosage: UNK
     Route: 048
  4. RYTARY [Suspect]
     Active Substance: CARBIDOPA\LEVODOPA
     Dosage: 61.25/245 MG, ONE CAPSULE, TWICE DAILY
     Route: 048
     Dates: start: 201805
  5. ENTACAPONE. [Concomitant]
     Active Substance: ENTACAPONE
     Indication: PRODUCT USED FOR UNKNOWN INDICATION
     Dosage: UNK
     Route: 048

REACTIONS (5)
  - Drug effect delayed [Unknown]
  - Nausea [Recovered/Resolved]
  - Ulcer [Recovering/Resolving]
  - Drug effect incomplete [Unknown]
  - Feeling abnormal [Not Recovered/Not Resolved]

NARRATIVE: CASE EVENT DATE: 201805
